FAERS Safety Report 10409275 (Version 1)
Quarter: 2014Q2

REPORT INFORMATION
  Report Type: Spontaneous
  Country: US (occurrence: None)
  Receive Date: 20140604
  Receipt Date: 20140604
  Transmission Date: 20141212
  Serious: Yes (Other)
  Sender: FDA-Public Use
  Company Number: 163-POMAL-14031979

PATIENT
  Age: 81 Year
  Sex: Male
  Weight: 73.5 kg

DRUGS (12)
  1. POMALYST (POMALIDOMIDE) (2 MILLIGRAM, CAPSULES) [Suspect]
     Indication: PLASMA CELL MYELOMA
     Dosage: 2 MG, 1 IN 2 D, PO
     Route: 048
     Dates: start: 20130624
  2. ALEVE (NAPROXEN SODIUM) [Concomitant]
  3. DEXAMETHASONE [Concomitant]
  4. SIMVASTATIN [Concomitant]
  5. METOPROLOL TARTRATE [Concomitant]
  6. LORAZEPAM [Concomitant]
  7. OXYCODONE [Concomitant]
  8. ISOSORBIDE MONONITRATE [Concomitant]
  9. ACYCLOVIR [Concomitant]
  10. VITAMIN B12 (CYANOCOBALAMIN) [Concomitant]
  11. VITAMIN D3 (COLECALCIFEROL) [Concomitant]
  12. CLOTRIMAZOLE [Concomitant]

REACTIONS (10)
  - Tongue discolouration [None]
  - Candida infection [None]
  - Light chain analysis increased [None]
  - Skin disorder [None]
  - Chest pain [None]
  - Weight decreased [None]
  - Thrombophlebitis superficial [None]
  - Pneumocystis jirovecii pneumonia [None]
  - Nasopharyngitis [None]
  - Fatigue [None]
